FAERS Safety Report 7995303-8 (Version None)
Quarter: 2011Q4

REPORT INFORMATION
  Report Type: 
  Country: None (occurrence: None)
  Receive Date: 20111220
  Receipt Date: 20111209
  Transmission Date: 20120403
  Serious: Yes (Other)
  Sender: FDA-Public Use
  Company Number: CA-JNJFOC-20111205863

PATIENT
  Sex: Male
  Weight: 88.9 kg

DRUGS (5)
  1. PENTASA [Concomitant]
     Route: 065
  2. REMICADE [Suspect]
     Indication: CROHN'S DISEASE
     Dosage: HAS HAD 67 INFUSIONS
     Route: 042
  3. CHOLESTYRAMINE [Concomitant]
     Route: 065
  4. GEMFIBROZIL [Concomitant]
     Route: 065
  5. ATENOLOL [Concomitant]
     Route: 065

REACTIONS (1)
  - HEART VALVE CALCIFICATION [None]
